FAERS Safety Report 23838809 (Version 1)
Quarter: 2024Q2

REPORT INFORMATION
  Report Type: Report from Study
  Country: US (occurrence: US)
  Receive Date: 20240509
  Receipt Date: 20240509
  Transmission Date: 20240716
  Serious: Yes (Hospitalization, Other)
  Sender: FDA-Public Use
  Company Number: US-ARGENX-2024-ARGX-US000400

PATIENT

DRUGS (1)
  1. VYVGART [Suspect]
     Active Substance: EFGARTIGIMOD ALFA-FCAB
     Indication: Myasthenia gravis
     Dosage: UNK
     Route: 042
     Dates: start: 20220704, end: 20240119

REACTIONS (5)
  - Myasthenia gravis [Unknown]
  - Myasthenia gravis [Unknown]
  - Discomfort [Unknown]
  - Nasal congestion [Unknown]
  - Cough [Unknown]
